FAERS Safety Report 10871919 (Version 1)
Quarter: 2015Q1

REPORT INFORMATION
  Report Type: Spontaneous
  Country: NL (occurrence: NL)
  Receive Date: 20150226
  Receipt Date: 20150226
  Transmission Date: 20150721
  Serious: Yes (Hospitalization, Other)
  Sender: FDA-Public Use
  Company Number: NL-PFIZER INC-2015046014

PATIENT
  Age: 62 Year
  Sex: Female
  Weight: 54 kg

DRUGS (12)
  1. FLIXOTIDE [Concomitant]
     Active Substance: FLUTICASONE PROPIONATE
     Dosage: 100 ?G, 2X/DAY
     Route: 055
  2. XALKORI [Suspect]
     Active Substance: CRIZOTINIB
     Indication: NON-SMALL CELL LUNG CANCER
     Dosage: 250 MG, 2X/DAY
  3. CODEINE PHOSPHATE [Concomitant]
     Active Substance: CODEINE PHOSPHATE
     Dosage: 10 MG, AS NEEDED
     Route: 048
  4. METOPROLOLSUCCINAAT [Concomitant]
     Dosage: 47.5 MG, 1X/DAY
     Route: 048
  5. XALKORI [Suspect]
     Active Substance: CRIZOTINIB
     Dosage: 250 MG, 1X/DAY
  6. GRANISETRON [Concomitant]
     Active Substance: GRANISETRON
     Dosage: 1 MG, 2X/DAY AS NEEDED
  7. DEXAMETHASONE. [Concomitant]
     Active Substance: DEXAMETHASONE
     Dosage: 3 MG, 1X/DAY
  8. VENTOLIN [Concomitant]
     Active Substance: ALBUTEROL SULFATE
     Dosage: 200 ?G, 1-4 TIMES PER DAY
     Route: 055
  9. PANTOPRAZOLE [Concomitant]
     Active Substance: PANTOPRAZOLE SODIUM
     Dosage: 40 MG, 1X/DAY
     Route: 048
  10. PARACETAMOL [Concomitant]
     Active Substance: ACETAMINOPHEN
     Dosage: 500 MG, 3X2 TABLETS/DAY, AS NEEDED
     Route: 048
  11. METOCLOPRAMIDE. [Concomitant]
     Active Substance: METOCLOPRAMIDE
     Dosage: 10 MG, 3X/DAY AS NEEDED
     Route: 054
  12. MOVICOLON [Concomitant]
     Active Substance: POLYETHYLENE GLYCOL 3350\POTASSIUM CHLORIDE\SODIUM BICARBONATE\SODIUM CHLORIDE
     Dosage: 1 DF, 2X/DAY

REACTIONS (27)
  - Malaise [Unknown]
  - Dry mouth [Unknown]
  - Cough [Recovered/Resolved]
  - Abdominal pain [Unknown]
  - Back pain [Recovering/Resolving]
  - Vomiting [Recovered/Resolved]
  - Dizziness [Unknown]
  - Dyspnoea [Unknown]
  - Stress urinary incontinence [Unknown]
  - Weight decreased [Unknown]
  - Fluid intake reduced [Unknown]
  - Vision blurred [Unknown]
  - Liver disorder [Unknown]
  - Pruritus [Unknown]
  - Tinnitus [Unknown]
  - Asthenia [Unknown]
  - Nausea [Recovered/Resolved]
  - Hypertension [Unknown]
  - Dermatitis [Unknown]
  - Non-small cell lung cancer [Unknown]
  - Headache [Unknown]
  - Alopecia [Unknown]
  - Disease progression [Unknown]
  - Decreased appetite [Unknown]
  - Constipation [Unknown]
  - Fatigue [Unknown]
  - Confusional state [Unknown]

NARRATIVE: CASE EVENT DATE: 201501
